FAERS Safety Report 13017293 (Version 1)
Quarter: 2016Q4

REPORT INFORMATION
  Report Type: Spontaneous
  Country: JP (occurrence: JP)
  Receive Date: 20161212
  Receipt Date: 20161212
  Transmission Date: 20170207
  Serious: Yes (Other)
  Sender: FDA-Public Use
  Company Number: JP-PFIZER INC-2016568597

PATIENT
  Sex: Male

DRUGS (1)
  1. VFEND [Suspect]
     Active Substance: VORICONAZOLE
     Indication: MENINGITIS ASPERGILLUS
     Dosage: UNK
     Route: 048

REACTIONS (4)
  - Feeling abnormal [Unknown]
  - Mental impairment [Unknown]
  - Altered state of consciousness [Unknown]
  - Diarrhoea [Unknown]
